FAERS Safety Report 5483951-9 (Version None)
Quarter: 2007Q4

REPORT INFORMATION
  Report Type: 
  Country: None (occurrence: None)
  Receive Date: 20071012
  Receipt Date: 20071003
  Transmission Date: 20080405
  Serious: Yes (Death)
  Sender: FDA-Public Use
  Company Number: JP-MERCK-0710USA01327

PATIENT
  Age: 93 Year
  Sex: Female

DRUGS (2)
  1. STROMECTOL [Suspect]
     Indication: ACARODERMATITIS
     Route: 048
     Dates: start: 20070919, end: 20070919
  2. STROMECTOL [Suspect]
     Route: 048
     Dates: start: 20070926, end: 20070926

REACTIONS (1)
  - CARDIAC FAILURE CHRONIC [None]
